FAERS Safety Report 9662051 (Version 1)
Quarter: 2013Q4

REPORT INFORMATION
  Report Type: Spontaneous
  Country: KR (occurrence: None)
  Receive Date: 20131030
  Receipt Date: 20131030
  Transmission Date: 20140711
  Serious: Yes (Life-Threatening)
  Sender: FDA-Public Use
  Company Number: KR-SEPTODONT-201301564

PATIENT
  Age: 74 Year
  Sex: Female
  Weight: 48 kg

DRUGS (5)
  1. LIGNOSPAN STANDARD [Suspect]
     Indication: LOCAL ANAESTHESIA
     Dosage: OTHER
     Dates: start: 20131010, end: 20131010
  2. DIABEX [Concomitant]
  3. ANALGESIC (PETHIDINE) [Concomitant]
  4. JINFERAZONE (JINFERAZONE) [Concomitant]
  5. LIGNOSPAN STANDARD [Suspect]
     Indication: LOCAL ANAESTHESIA
     Route: 048
     Dates: start: 20131010, end: 20131010

REACTIONS (10)
  - Urticaria [None]
  - Pruritus [None]
  - Bradycardia [None]
  - Toxicity to various agents [None]
  - Off label use [None]
  - Blood pressure decreased [None]
  - Heart rate decreased [None]
  - Anaphylactoid reaction [None]
  - Off label use [None]
  - Medication error [None]
